FAERS Safety Report 4702795-6 (Version None)
Quarter: 2005Q2

REPORT INFORMATION
  Report Type: 
  Country: None (occurrence: None)
  Receive Date: 20050629
  Receipt Date: 20050309
  Transmission Date: 20051028
  Serious: Yes (Hospitalization, Disabling)
  Sender: FDA-Public Use
  Company Number: US-MERCK-0503USA01769

PATIENT
  Age: 50 Year
  Sex: Female
  Weight: 90 kg

DRUGS (8)
  1. VIOXX [Suspect]
     Indication: ARTHRITIS
     Route: 048
     Dates: start: 19990101, end: 20011201
  2. VIOXX [Suspect]
     Indication: PAIN
     Route: 048
     Dates: start: 19990101, end: 20011201
  3. SINGULAIR [Concomitant]
     Route: 048
  4. PROZAC [Concomitant]
     Indication: DEPRESSION
     Route: 065
     Dates: start: 19930101
  5. IBUPROFEN [Concomitant]
     Route: 065
  6. [THERAPY UNSPECIFIED] [Concomitant]
     Indication: HYPERTENSION
     Route: 065
     Dates: start: 19930101
  7. NORVASC [Concomitant]
     Indication: CEREBROVASCULAR ACCIDENT
     Route: 065
     Dates: start: 19990101
  8. NORVASC [Concomitant]
     Indication: BLOOD PRESSURE
     Route: 065
     Dates: start: 19990101

REACTIONS (19)
  - APHASIA [None]
  - ASTHMA [None]
  - BACK PAIN [None]
  - BLOOD CHOLESTEROL INCREASED [None]
  - BLOOD CREATININE INCREASED [None]
  - CEREBROVASCULAR ACCIDENT [None]
  - CROHN'S DISEASE [None]
  - DEPRESSION [None]
  - EAR INFECTION [None]
  - EPISTAXIS [None]
  - GASTRIC DISORDER [None]
  - HERNIA [None]
  - HYPERTENSION [None]
  - NERVOUS SYSTEM DISORDER [None]
  - OBESITY [None]
  - OESOPHAGEAL DISORDER [None]
  - PAIN [None]
  - RESPIRATORY FAILURE [None]
  - SINUSITIS [None]
